FAERS Safety Report 12621595 (Version 3)
Quarter: 2016Q3

REPORT INFORMATION
  Report Type: Spontaneous
  Country: US (occurrence: US)
  Receive Date: 20160804
  Receipt Date: 20160808
  Transmission Date: 20161109
  Serious: No
  Sender: FDA-Public Use
  Company Number: US-BEH-2016062521

PATIENT
  Sex: Female
  Weight: 88 kg

DRUGS (27)
  1. METHOCARBAMOL. [Concomitant]
     Active Substance: METHOCARBAMOL
  2. OXYGEN. [Concomitant]
     Active Substance: OXYGEN
  3. ETODOLAC. [Concomitant]
     Active Substance: ETODOLAC
  4. FENOFIBRATE. [Concomitant]
     Active Substance: FENOFIBRATE
  5. HYDROCODONE-ACETAMINOPHEN [Concomitant]
     Active Substance: ACETAMINOPHEN\HYDROCODONE
  6. BENZONATATE. [Concomitant]
     Active Substance: BENZONATATE
  7. HIZENTRA [Suspect]
     Active Substance: HUMAN IMMUNOGLOBULIN G
     Indication: IMMUNODEFICIENCY COMMON VARIABLE
     Route: 058
  8. SINGULAIR [Concomitant]
     Active Substance: MONTELUKAST SODIUM
  9. ALBUTEROL. [Concomitant]
     Active Substance: ALBUTEROL
  10. CIPRO [Concomitant]
     Active Substance: CIPROFLOXACIN HYDROCHLORIDE
  11. FLUTICASONE [Concomitant]
     Active Substance: FLUTICASONE\FLUTICASONE PROPIONATE
  12. LANTUS [Concomitant]
     Active Substance: INSULIN GLARGINE
  13. AZELASTINE [Concomitant]
     Active Substance: AZELASTINE
  14. PREDNISONE. [Concomitant]
     Active Substance: PREDNISONE
  15. BENADRYL [Concomitant]
     Active Substance: DIPHENHYDRAMINE HYDROCHLORIDE
  16. LEVAQUIN [Concomitant]
     Active Substance: LEVOFLOXACIN
  17. OMEPRAZOLE. [Concomitant]
     Active Substance: OMEPRAZOLE
  18. POTASSIUM [Concomitant]
     Active Substance: POTASSIUM
  19. OMEGA-3 FISH OIL [Concomitant]
     Active Substance: FISH OIL\OMEGA-3 FATTY ACIDS
  20. TOVIAZ [Concomitant]
     Active Substance: FESOTERODINE FUMARATE
  21. LYRICA [Concomitant]
     Active Substance: PREGABALIN
  22. RANITIDINE. [Concomitant]
     Active Substance: RANITIDINE
  23. GRAPE SEED [Concomitant]
  24. LISINOPRIL. [Concomitant]
     Active Substance: LISINOPRIL
  25. AMBIEN [Concomitant]
     Active Substance: ZOLPIDEM TARTRATE
  26. BUDESONIDE. [Concomitant]
     Active Substance: BUDESONIDE
  27. MUCINEX DM [Concomitant]
     Active Substance: DEXTROMETHORPHAN HYDROBROMIDE\GUAIFENESIN

REACTIONS (1)
  - Sinusitis [Unknown]
